FAERS Safety Report 9325005 (Version 1)
Quarter: 2013Q2

REPORT INFORMATION
  Report Type: Spontaneous
  Country: US (occurrence: US)
  Receive Date: 20130603
  Receipt Date: 20130603
  Transmission Date: 20140414
  Serious: No
  Sender: FDA-Public Use
  Company Number: US-009507513-1305USA014671

PATIENT
  Sex: Male

DRUGS (2)
  1. CLARITIN ORAL SOLUTION [Suspect]
     Indication: HYPERSENSITIVITY
     Dosage: UNK, QD
     Route: 048
  2. CLARITIN ORAL SOLUTION [Suspect]
     Dosage: 10 MG, BID
     Route: 048
     Dates: start: 20130511

REACTIONS (2)
  - Overdose [Recovering/Resolving]
  - No adverse event [Unknown]
